FAERS Safety Report 9397016 (Version 1)
Quarter: 2013Q3

REPORT INFORMATION
  Report Type: Report from Study
  Country: US (occurrence: US)
  Receive Date: 20130712
  Receipt Date: 20130712
  Transmission Date: 20140515
  Serious: Yes (Hospitalization)
  Sender: FDA-Public Use
  Company Number: US-ROCHE-609628

PATIENT
  Age: 57 Year
  Sex: Female
  Weight: 90 kg

DRUGS (19)
  1. BEVACIZUMAB [Suspect]
     Indication: BREAST CANCER
     Dosage: FORM: VIALS.
     Route: 042
  2. BEVACIZUMAB [Suspect]
     Dosage: FORM: VIALS; LAST DOSE PRIOR TO SAE WAS ON 12 MAY 2009
     Route: 042
  3. TRASTUZUMAB [Suspect]
     Indication: BREAST CANCER
     Dosage: FORM: VIALS
     Route: 042
  4. TRASTUZUMAB [Suspect]
     Dosage: FORM: VIALS; LAST DOSE PRIOR TO SAE WAS ON 12 MAY 2009
     Route: 042
  5. DOCETAXEL [Suspect]
     Indication: BREAST CANCER
     Dosage: FORM: VIALS; LAST DOSE PRIOR TO SAE WAS ON 10 MAR 2009
     Route: 042
  6. CARBOPLATIN [Suspect]
     Indication: BREAST CANCER
     Dosage: FORM: VIALS; LAST DOSE PRIOR TO SAE WAS ON 10 MAR 2009
     Route: 042
  7. ALBUTEROL [Concomitant]
     Route: 065
  8. APREPITANT [Concomitant]
     Route: 065
  9. DECADRON [Concomitant]
     Route: 065
  10. IBUPROFEN [Concomitant]
     Route: 065
  11. COMPAZINE [Concomitant]
     Route: 065
  12. TYLENOL [Concomitant]
     Route: 065
  13. SENOKOT-S [Concomitant]
     Route: 065
  14. LORAZEPAM [Concomitant]
     Route: 065
  15. ZOFRAN [Concomitant]
     Route: 065
  16. MIRALAX [Concomitant]
     Route: 065
  17. BENADRYL [Concomitant]
     Route: 065
  18. AZTREONAM [Concomitant]
     Dosage: TDD: 69/DAY
     Route: 065
  19. CLINDAMYCIN [Concomitant]
     Route: 065

REACTIONS (7)
  - Headache [Recovered/Resolved]
  - Vomiting [Recovered/Resolved]
  - Dyspnoea [Recovered/Resolved]
  - Lung infection [Recovered/Resolved]
  - Neutropenia [Recovered/Resolved]
  - Nausea [Recovered/Resolved]
  - Upper respiratory tract infection [Recovered/Resolved]
